FAERS Safety Report 18081759 (Version 2)
Quarter: 2020Q3

REPORT INFORMATION
  Report Type: Report from Study
  Country: None (occurrence: US)
  Receive Date: 20200728
  Receipt Date: 20200813
  Transmission Date: 20201103
  Serious: Yes (Other)
  Sender: FDA-Public Use
  Company Number: US-ABBVIE-20K-163-3498664-00

PATIENT
  Age: 53 Year
  Sex: Female

DRUGS (3)
  1. PREDNISON [Concomitant]
     Active Substance: PREDNISONE
     Indication: PRODUCT USED FOR UNKNOWN INDICATION
     Route: 065
  2. HUMIRA [Suspect]
     Active Substance: ADALIMUMAB
     Route: 058
     Dates: start: 20200718
  3. HUMIRA [Suspect]
     Active Substance: ADALIMUMAB
     Indication: RHEUMATOID ARTHRITIS
     Route: 058
     Dates: start: 201907, end: 2020

REACTIONS (13)
  - Exposure to SARS-CoV-2 [Unknown]
  - Systemic lupus erythematosus [Unknown]
  - Gait disturbance [Not Recovered/Not Resolved]
  - Osteoarthritis [Unknown]
  - Hyperhidrosis [Unknown]
  - Headache [Not Recovered/Not Resolved]
  - Knee arthroplasty [Unknown]
  - Headache [Recovered/Resolved]
  - Pain [Not Recovered/Not Resolved]
  - Loss of personal independence in daily activities [Recovering/Resolving]
  - Fibromyalgia [Unknown]
  - Depression [Recovered/Resolved]
  - Anxiety [Recovered/Resolved]

NARRATIVE: CASE EVENT DATE: 2020
